FAERS Safety Report 14423541 (Version 27)
Quarter: 2024Q3

REPORT INFORMATION
  Report Type: Spontaneous
  Country: US (occurrence: US)
  Receive Date: 20180123
  Receipt Date: 20240906
  Transmission Date: 20241017
  Serious: Yes (Other)
  Sender: PFIZER
  Company Number: US-PFIZER INC-2018027236

PATIENT
  Age: 81 Year
  Sex: Female
  Weight: 52 kg

DRUGS (5)
  1. BOSULIF [Suspect]
     Active Substance: BOSUTINIB MONOHYDRATE
     Indication: Chronic myeloid leukaemia (in remission)
     Dosage: 100MG ONCE A DAY BY MOUTH WHILE IN REMISSION
     Route: 048
     Dates: start: 2008
  2. BOSULIF [Suspect]
     Active Substance: BOSUTINIB MONOHYDRATE
     Dosage: 100 MG, 1X/DAY
     Route: 048
     Dates: start: 20170614
  3. BOSULIF [Suspect]
     Active Substance: BOSUTINIB MONOHYDRATE
     Dosage: 100 MG, 1X/DAY
     Route: 048
  4. BOSULIF [Suspect]
     Active Substance: BOSUTINIB MONOHYDRATE
     Dosage: 100 MG
     Route: 048
  5. BOSULIF [Suspect]
     Active Substance: BOSUTINIB MONOHYDRATE
     Dosage: 100 MG, 1X/DAY
     Route: 048
     Dates: end: 202312

REACTIONS (36)
  - Dementia Alzheimer^s type [Unknown]
  - Poor quality product administered [Unknown]
  - Product dose omission issue [Unknown]
  - Fall [Unknown]
  - Skin disorder [Unknown]
  - Tongue disorder [Unknown]
  - Eye disorder [Unknown]
  - Oral pain [Unknown]
  - Memory impairment [Not Recovered/Not Resolved]
  - Condition aggravated [Not Recovered/Not Resolved]
  - Stomatitis [Unknown]
  - Papule [Not Recovered/Not Resolved]
  - Fluid retention [Recovered/Resolved]
  - Insomnia [Unknown]
  - Confusional state [Unknown]
  - Pain in extremity [Unknown]
  - Astigmatism [Unknown]
  - Acrochordon [Unknown]
  - Skin discolouration [Unknown]
  - Full blood count decreased [Recovering/Resolving]
  - Tooth extraction [Unknown]
  - Bone disorder [Unknown]
  - Oral herpes [Unknown]
  - Alopecia [Unknown]
  - Nausea [Unknown]
  - Immune system disorder [Not Recovered/Not Resolved]
  - Malaise [Unknown]
  - Rash macular [Not Recovered/Not Resolved]
  - Rash [Unknown]
  - Abdominal pain upper [Unknown]
  - Chest pain [Unknown]
  - Acne [Unknown]
  - Chest discomfort [Recovered/Resolved]
  - Product physical issue [Unknown]
  - Feeling abnormal [Unknown]
  - Intentional product misuse [Unknown]

NARRATIVE: CASE EVENT DATE: 20170101
